FAERS Safety Report 9103897 (Version 1)
Quarter: 2013Q1

REPORT INFORMATION
  Report Type: Spontaneous
  Country: US (occurrence: US)
  Receive Date: 20130219
  Receipt Date: 20130219
  Transmission Date: 20140127
  Serious: Yes (Hospitalization)
  Sender: FDA-Public Use
  Company Number: US-JNJFOC-20130207422

PATIENT
  Age: 70 Year
  Sex: Female
  Weight: 65.55 kg

DRUGS (11)
  1. XARELTO [Suspect]
     Indication: THROMBOSIS PROPHYLAXIS
     Route: 048
     Dates: start: 20120614, end: 20120614
  2. DOCUSATE SODIUM [Concomitant]
     Route: 048
  3. HYDROCHLOROTHIAZIDE [Concomitant]
     Route: 048
  4. OXYCODONE/ACETAMINOPHEN [Concomitant]
     Dosage: 5/325MG 1-2 PER ORAL AS NEEDED
     Route: 048
  5. CEFAZOLIN [Concomitant]
     Dosage: X2
     Route: 042
  6. LISINOPRIL [Concomitant]
     Route: 048
  7. NAPROXEN [Concomitant]
     Dosage: AS NEEDED
     Route: 065
  8. FISH OIL [Concomitant]
     Route: 065
  9. BRIMONIDINE [Concomitant]
     Route: 065
  10. TIMOLOL [Concomitant]
     Route: 065
  11. PREDNISOLONE [Concomitant]
     Route: 065

REACTIONS (3)
  - Pulmonary embolism [Unknown]
  - Prothrombin time prolonged [Unknown]
  - International normalised ratio increased [Unknown]
